FAERS Safety Report 9967380 (Version 1)
Quarter: 2014Q1

REPORT INFORMATION
  Report Type: Report from Study
  Country: US (occurrence: US)
  Receive Date: 20140305
  Receipt Date: 20140305
  Transmission Date: 20141002
  Serious: No
  Sender: FDA-Public Use
  Company Number: US-ABBVIE-13P-163-1137562-00

PATIENT
  Age: 68 Year
  Sex: Female

DRUGS (9)
  1. HUMIRA [Suspect]
     Indication: CROHN^S DISEASE
     Dates: start: 20130709
  2. LIALDA [Concomitant]
     Indication: CROHN^S DISEASE
     Dosage: 4 TABLETS DAILY
  3. ENTOCORT [Concomitant]
     Indication: CROHN^S DISEASE
     Dosage: 3 MG DAILY
  4. ENTOCORT [Concomitant]
     Dosage: 1 PILL (MD HAS BEEN HAVING HER WEAN THIS TO BE FINISHED NEXT WEEK)
  5. VITAMIN B12 [Concomitant]
     Indication: VITAMIN SUPPLEMENTATION
     Dosage: 1000 MCG DAILY
  6. FISH OIL [Concomitant]
     Indication: DRY EYE
  7. CALCIUM [Concomitant]
     Indication: OSTEOPENIA
     Dosage: 600 MG DAILY
  8. MULTIVITAMIN [Concomitant]
     Indication: VITAMIN SUPPLEMENTATION
     Dosage: DAILY
  9. BUDESONIDE [Concomitant]
     Indication: PRODUCT USED FOR UNKNOWN INDICATION

REACTIONS (1)
  - Diarrhoea [Not Recovered/Not Resolved]
